FAERS Safety Report 16321187 (Version 1)
Quarter: 2019Q2

REPORT INFORMATION
  Report Type: Report from Study
  Country: TR (occurrence: TR)
  Receive Date: 20190516
  Receipt Date: 20190516
  Transmission Date: 20190711
  Serious: Yes (Death, Other)
  Sender: FDA-Public Use
  Company Number: TR-PFIZER INC-2019203758

PATIENT
  Age: 52 Year
  Sex: Male

DRUGS (1)
  1. XALKORI [Suspect]
     Active Substance: CRIZOTINIB
     Dosage: 250 MG, 2X/DAY
     Dates: start: 20170404, end: 20171024

REACTIONS (14)
  - Electrocardiogram QT prolonged [Unknown]
  - Muscle spasms [Unknown]
  - Hypothyroidism [Unknown]
  - Fatigue [Unknown]
  - Anaemia [Unknown]
  - Hepatotoxicity [Unknown]
  - Cough [Unknown]
  - Oedema peripheral [Unknown]
  - Renal impairment [Unknown]
  - Embolism venous [Unknown]
  - Nausea [Unknown]
  - Neutropenia [Unknown]
  - Abdominal pain upper [Unknown]
  - Visual impairment [Unknown]

NARRATIVE: CASE EVENT DATE: 20170804
